FAERS Safety Report 6219785-7 (Version None)
Quarter: 2009Q2

REPORT INFORMATION
  Report Type: 
  Country: None (occurrence: None)
  Receive Date: 20090609
  Receipt Date: 20090601
  Transmission Date: 20091009
  Serious: Yes (Other)
  Sender: FDA-Public Use
  Company Number: B0575279A

PATIENT
  Sex: Female

DRUGS (11)
  1. PAXIL [Suspect]
     Indication: PANIC DISORDER
     Dosage: 30MG PER DAY
     Route: 048
     Dates: start: 20080901, end: 20090501
  2. PAXIL [Suspect]
     Dosage: 25MG PER DAY
     Route: 048
     Dates: start: 20090514, end: 20090525
  3. PAXIL [Suspect]
     Dosage: 20MG PER DAY
     Route: 048
     Dates: start: 20090526
  4. MEILAX [Concomitant]
     Indication: PANIC DISORDER
     Dosage: 2MG PER DAY
     Route: 048
     Dates: start: 20090317
  5. MYSLEE [Concomitant]
     Indication: INSOMNIA
     Dosage: 5MG PER DAY
     Route: 048
     Dates: start: 20081216
  6. COLONEL [Concomitant]
     Indication: IRRITABLE BOWEL SYNDROME
     Dosage: 3000MG PER DAY
     Route: 048
     Dates: start: 20090106
  7. GASMOTIN [Concomitant]
     Indication: ABDOMINAL DISCOMFORT
     Dosage: 15MG PER DAY
     Route: 048
     Dates: start: 20090120
  8. CHINESE MEDICINE [Concomitant]
     Indication: NAUSEA
     Dosage: 7.5MG PER DAY
     Route: 048
  9. SOLANAX [Concomitant]
     Dosage: .4MG PER DAY
     Route: 048
     Dates: start: 20081203
  10. RISPERIDONE [Concomitant]
     Dosage: .5G PER DAY
  11. ZOLOFT [Concomitant]
     Dosage: 25MG PER DAY

REACTIONS (4)
  - CRYING [None]
  - IMPULSE-CONTROL DISORDER [None]
  - RESTLESSNESS [None]
  - SCREAMING [None]
